FAERS Safety Report 13264655 (Version 1)
Quarter: 2017Q1

REPORT INFORMATION
  Report Type: Spontaneous
  Country: US (occurrence: US)
  Receive Date: 20170223
  Receipt Date: 20170223
  Transmission Date: 20170428
  Serious: No
  Sender: FDA-Public Use
  Company Number: None

PATIENT
  Age: 72 Year
  Sex: Female
  Weight: 58.95 kg

DRUGS (1)
  1. FORTEO [Suspect]
     Active Substance: TERIPARATIDE
     Indication: OSTEOPOROSIS
     Route: 058
     Dates: start: 20160524

REACTIONS (4)
  - Injection site swelling [None]
  - Injection site pruritus [None]
  - Injection site pain [None]
  - Injection site erythema [None]

NARRATIVE: CASE EVENT DATE: 20170223
